FAERS Safety Report 9220959 (Version 1)
Quarter: 2013Q2

REPORT INFORMATION
  Report Type: Spontaneous
  Country: US (occurrence: US)
  Receive Date: 20130409
  Receipt Date: 20130409
  Transmission Date: 20140414
  Serious: Yes (Other)
  Sender: FDA-Public Use
  Company Number: US-PFIZER INC-2013108353

PATIENT
  Age: 45 Year
  Sex: Male
  Weight: 125 kg

DRUGS (6)
  1. XANAX [Suspect]
     Indication: ANXIETY
     Dosage: UNK
  2. XANAX [Suspect]
     Indication: AGORAPHOBIA
  3. ZIPRASIDONE HCL [Suspect]
     Indication: AFFECTIVE DISORDER
     Dosage: 100-140MG IN A DAY
     Dates: start: 201212, end: 20130218
  4. SONATA [Suspect]
     Indication: INSOMNIA
     Dosage: UNK
  5. PROPRANOLOL [Concomitant]
     Indication: AGORAPHOBIA
     Dosage: UNK
  6. DOXEPIN [Concomitant]
     Indication: DEPRESSION
     Dosage: UNK

REACTIONS (5)
  - Agoraphobia [Recovered/Resolved]
  - Anxiety [Recovered/Resolved]
  - Insomnia [Recovered/Resolved]
  - Hypoaesthesia [Recovered/Resolved]
  - Paraesthesia [Recovered/Resolved]
